FAERS Safety Report 4353637-2 (Version None)
Quarter: 2004Q2

REPORT INFORMATION
  Report Type: 
  Country: None (occurrence: None)
  Receive Date: 20040430
  Receipt Date: 20040420
  Transmission Date: 20050107
  Serious: Yes (Hospitalization, Other)
  Sender: FDA-Public Use
  Company Number: 2004027303

PATIENT
  Age: 50 Year
  Sex: Male

DRUGS (7)
  1. GABAPENTIN [Suspect]
     Indication: PAIN
     Dosage: 200 MG (QID), ORAL
     Route: 048
  2. ANTIBIOTICS (ANTIBIOTICS) [Concomitant]
  3. MORPHINE SULFATE [Concomitant]
  4. TRAZODONE HCL [Concomitant]
  5. CLONAZEPAM [Concomitant]
  6. PANTOPRAZOLE (PANTOPRAZOLE) [Concomitant]
  7. ALL OTHER THERAPEUTIC PRODUCTS (ALL OTHER THERAPEUTIC PRODUCTS) [Concomitant]

REACTIONS (1)
  - NEUTROPENIC SEPSIS [None]
